FAERS Safety Report 9118306 (Version 1)
Quarter: 2013Q1

REPORT INFORMATION
  Report Type: Spontaneous
  Country: US (occurrence: None)
  Receive Date: 20130221
  Receipt Date: 20130221
  Transmission Date: 20140127
  Serious: Yes (Hospitalization)
  Sender: FDA-Public Use
  Company Number: None

PATIENT
  Age: 70 Year
  Sex: Female
  Weight: 61.24 kg

DRUGS (1)
  1. TAMIFLU 75 MG GENENTECH [Suspect]
     Indication: INFLUENZA
     Route: 048
     Dates: start: 20130111, end: 20130116

REACTIONS (3)
  - Speech disorder [None]
  - Hypoaesthesia [None]
  - Hypoaesthesia [None]
